FAERS Safety Report 21450478 (Version 1)
Quarter: 2022Q4

REPORT INFORMATION
  Report Type: Spontaneous
  Country: US (occurrence: US)
  Receive Date: 20221013
  Receipt Date: 20221013
  Transmission Date: 20230112
  Serious: No
  Sender: FDA-Public Use
  Company Number: US-PERRIGO-22US001914

PATIENT
  Age: 2 Year
  Sex: Male
  Weight: 17.143 kg

DRUGS (5)
  1. CHILDRENS CETIRIZINE HYDROCHLORIDE ALLERGY [Suspect]
     Active Substance: CETIRIZINE HYDROCHLORIDE
     Indication: Rash
     Dosage: 2.5 MG, QD
     Route: 048
     Dates: start: 20220124
  2. CHILDRENS CETIRIZINE HYDROCHLORIDE ALLERGY [Suspect]
     Active Substance: CETIRIZINE HYDROCHLORIDE
     Dosage: 5 MG, SINGLE
     Route: 048
     Dates: start: 20220201, end: 20220201
  3. PREDNISONE [Concomitant]
     Active Substance: PREDNISONE
     Indication: Croup infectious
     Dosage: UNK
     Route: 065
     Dates: start: 20220131
  4. AMOXICILLIN [Concomitant]
     Active Substance: AMOXICILLIN
     Indication: Croup infectious
     Dosage: UNK
     Route: 065
     Dates: start: 20220131
  5. TRIAMCINOLONE [Concomitant]
     Active Substance: TRIAMCINOLONE
     Indication: Rash
     Dosage: UNK
     Route: 065
     Dates: start: 20220124

REACTIONS (2)
  - Somnolence [Recovered/Resolved]
  - Off label use [Not Recovered/Not Resolved]

NARRATIVE: CASE EVENT DATE: 20220124
